FAERS Safety Report 17068163 (Version 2)
Quarter: 2021Q4

REPORT INFORMATION
  Report Type: Report from Study
  Country: US (occurrence: US)
  Receive Date: 20191122
  Receipt Date: 20211026
  Transmission Date: 20220303
  Serious: No
  Sender: FDA-Public Use
  Company Number: NVSC2019US044401

PATIENT
  Sex: Female

DRUGS (2)
  1. ENTRESTO [Suspect]
     Active Substance: SACUBITRIL\VALSARTAN
     Indication: Cardiac failure chronic
     Dosage: UNK
     Route: 065
  2. ENTRESTO [Suspect]
     Active Substance: SACUBITRIL\VALSARTAN
     Dosage: 97/103 MG
     Route: 065

REACTIONS (6)
  - Weight increased [Unknown]
  - Malaise [Unknown]
  - Asthenia [Unknown]
  - Blood potassium increased [Unknown]
  - Inappropriate schedule of product administration [Unknown]
  - Product quality issue [Unknown]
